FAERS Safety Report 7334829-7 (Version None)
Quarter: 2011Q1

REPORT INFORMATION
  Report Type: 
  Country: None (occurrence: None)
  Receive Date: 20110307
  Receipt Date: 20110224
  Transmission Date: 20110831
  Serious: Yes (Other)
  Sender: FDA-Public Use
  Company Number: FR-JNJFOC-20100906433

PATIENT
  Age: 22 Year
  Sex: Male
  Weight: 75 kg

DRUGS (7)
  1. REMICADE [Suspect]
     Dosage: A TOTAL OF 9 INFUSIONS
     Route: 042
  2. POLARAMINE [Concomitant]
     Indication: PREMEDICATION
  3. REMICADE [Suspect]
     Indication: CROHN'S DISEASE
     Dosage: 5TH INFUSION
     Route: 042
  4. REMICADE [Suspect]
     Route: 042
  5. REMICADE [Suspect]
     Route: 042
  6. REMICADE [Suspect]
     Route: 042
  7. REMICADE [Suspect]
     Route: 042

REACTIONS (13)
  - ANAPHYLACTOID REACTION [None]
  - ANAPHYLACTIC REACTION [None]
  - VOMITING [None]
  - URTICARIA [None]
  - PAPULE [None]
  - INFUSION RELATED REACTION [None]
  - CHEST PAIN [None]
  - PALLOR [None]
  - PYREXIA [None]
  - DRUG HYPERSENSITIVITY [None]
  - PARAESTHESIA [None]
  - CHEST DISCOMFORT [None]
  - BONE PAIN [None]
